FAERS Safety Report 4554524-7 (Version None)
Quarter: 2005Q1

REPORT INFORMATION
  Report Type: 
  Country: None (occurrence: None)
  Receive Date: 20050114
  Receipt Date: 20040105
  Transmission Date: 20050727
  Serious: Yes (Death, Hospitalization)
  Sender: FDA-Public Use
  Company Number: PHBS2004FR00536

PATIENT
  Age: 39 Year
  Sex: Female

DRUGS (4)
  1. DICLOFENAC (DICLOFENAC) [Suspect]
  2. PARACETAMOL (NGX) (PARACETAMOL) [Suspect]
  3. KETOPROFEN (NGX) (KETOPROFEN) [Suspect]
  4. INDOMETHACIN [Suspect]

REACTIONS (17)
  - ALPHA TUMOUR NECROSIS FACTOR INCREASED [None]
  - ANURIA [None]
  - BLOOD LACTIC ACID INCREASED [None]
  - ELECTROCARDIOGRAM ST SEGMENT ELEVATION [None]
  - ENCEPHALOPATHY [None]
  - ENDOTHELIN INCREASED [None]
  - GASTROINTESTINAL ISCHAEMIA [None]
  - GENERAL PHYSICAL HEALTH DETERIORATION [None]
  - HEPATIC FAILURE [None]
  - INTENTIONAL MISUSE [None]
  - INTERLEUKIN LEVEL INCREASED [None]
  - INTESTINAL ISCHAEMIA [None]
  - PANCREATITIS NECROTISING [None]
  - SHOCK [None]
  - SYSTEMIC INFLAMMATORY RESPONSE SYNDROME [None]
  - THERAPEUTIC RESPONSE DECREASED [None]
  - VASOCONSTRICTION [None]
